FAERS Safety Report 5029821-1 (Version None)
Quarter: 2006Q2

REPORT INFORMATION
  Report Type: 
  Country: None (occurrence: None)
  Receive Date: 20060620
  Receipt Date: 20060201
  Transmission Date: 20061013
  Serious: Yes (Life-Threatening, Other)
  Sender: FDA-Public Use
  Company Number: ESWYE363403FEB06

PATIENT
  Sex: Female

DRUGS (3)
  1. ENBREL [Suspect]
     Indication: RHEUMATOID ARTHRITIS
     Route: 058
     Dates: start: 20040901
  2. METHOTREXATE [Concomitant]
     Route: 048
     Dates: start: 20040101
  3. METHOTREXATE [Concomitant]
     Route: 048
     Dates: end: 20050601

REACTIONS (1)
  - AMYOTROPHIC LATERAL SCLEROSIS [None]
